FAERS Safety Report 12865061 (Version 1)
Quarter: 2016Q4

REPORT INFORMATION
  Report Type: Spontaneous
  Country: TR (occurrence: TR)
  Receive Date: 20161020
  Receipt Date: 20161020
  Transmission Date: 20170207
  Serious: Yes (Hospitalization, Other)
  Sender: FDA-Public Use
  Company Number: TR-ALKEM LABORATORIES LIMITED-TR-ALKEM-2016-00252

PATIENT
  Age: 42 Year
  Sex: Female

DRUGS (2)
  1. CEFUROXIME AXETIL. [Suspect]
     Active Substance: CEFUROXIME AXETIL
     Indication: PROCEDURAL COMPLICATION
     Dosage: 250 MG, QD
  2. NAPROXEN. [Suspect]
     Active Substance: NAPROXEN
     Indication: PROCEDURAL COMPLICATION
     Dosage: 550 MG, BID

REACTIONS (1)
  - Thrombotic thrombocytopenic purpura [Recovered/Resolved]
